FAERS Safety Report 17952610 (Version 1)
Quarter: 2020Q2

REPORT INFORMATION
  Report Type: Spontaneous
  Country: US (occurrence: US)
  Receive Date: 20200626
  Receipt Date: 20200626
  Transmission Date: 20200714
  Serious: Yes (Hospitalization)
  Sender: FDA-Public Use
  Company Number: US-GILEAD-2020-0476284

PATIENT
  Age: 60 Year
  Sex: Male
  Weight: 62.5 kg

DRUGS (20)
  1. FENTANYL. [Concomitant]
     Active Substance: FENTANYL
  2. FUROSEMIDE. [Concomitant]
     Active Substance: FUROSEMIDE
  3. PRECEDEX [Concomitant]
     Active Substance: DEXMEDETOMIDINE HYDROCHLORIDE
  4. ENOXAPARIN [Concomitant]
     Active Substance: ENOXAPARIN
  5. LANTUS [Concomitant]
     Active Substance: INSULIN GLARGINE
  6. AZITHROMYCIN FUMARATE [Concomitant]
  7. PROPOFOL. [Concomitant]
     Active Substance: PROPOFOL
  8. VECURONIUM [Concomitant]
     Active Substance: VECURONIUM BROMIDE
  9. VITAMIN C [Concomitant]
     Active Substance: ASCORBIC ACID
  10. REMDESIVIR. [Suspect]
     Active Substance: REMDESIVIR
     Indication: COVID-19
     Dosage: 200 MG, QD
     Route: 042
     Dates: start: 20200607, end: 20200607
  11. CEFTRIAXONE. [Concomitant]
     Active Substance: CEFTRIAXONE
  12. DILTIAZEM. [Concomitant]
     Active Substance: DILTIAZEM
  13. HYDRALAZINE [Concomitant]
     Active Substance: HYDRALAZINE HYDROCHLORIDE
  14. INSULIN LISPRO DCI [Concomitant]
  15. ZINC. [Concomitant]
     Active Substance: ZINC
  16. DEXAMETHASONE. [Concomitant]
     Active Substance: DEXAMETHASONE
  17. PIPERACILLIN AND TAZOBACTAM [Concomitant]
     Active Substance: PIPERACILLIN SODIUM\TAZOBACTAM SODIUM
  18. REMDESIVIR. [Suspect]
     Active Substance: REMDESIVIR
     Dosage: 100 MG, QD
     Route: 042
     Dates: start: 20200608, end: 20200611
  19. NOREPINEPHRINE BITARTRATE. [Concomitant]
     Active Substance: NOREPINEPHRINE BITARTRATE
  20. FAMOTIDINE. [Concomitant]
     Active Substance: FAMOTIDINE

REACTIONS (1)
  - Alanine aminotransferase increased [Recovering/Resolving]

NARRATIVE: CASE EVENT DATE: 20200608
